FAERS Safety Report 19978895 (Version 1)
Quarter: 2021Q4

REPORT INFORMATION
  Report Type: Spontaneous
  Country: US (occurrence: US)
  Receive Date: 20211020
  Receipt Date: 20211020
  Transmission Date: 20220303
  Serious: Yes (Other)
  Sender: FDA-Public Use
  Company Number: US-BAUSCH-BL-2021-034646

PATIENT
  Age: 73 Year
  Sex: Female

DRUGS (7)
  1. VERTEPORFIN [Suspect]
     Active Substance: VERTEPORFIN
     Indication: Polypoidal choroidal vasculopathy
     Dosage: 15MG RECONSTITUTED WITH 7ML OF STERILE WATER, DOSE OF 9 MG/4.5 ML OF RECONSTITUTED BASED ON OF 1.5M2
     Route: 065
  2. DEXTROSE [Suspect]
     Active Substance: DEXTROSE
     Indication: Polypoidal choroidal vasculopathy
     Dosage: FOR A TOTAL VOLUME OF 30 ML
     Route: 065
  3. ATORVASTATIN [Concomitant]
     Active Substance: ATORVASTATIN
     Indication: Ischaemic stroke
  4. CLOPIDOGREL [Concomitant]
     Active Substance: CLOPIDOGREL BISULFATE
     Indication: Ischaemic stroke
  5. ASPIRIN [Concomitant]
     Active Substance: ASPIRIN
     Indication: Ischaemic stroke
  6. AFLIBERCEPT [Concomitant]
     Active Substance: AFLIBERCEPT
     Indication: Retinal haemorrhage
  7. DIMETHICONE [Concomitant]
     Active Substance: DIMETHICONE
     Indication: Retinal haemorrhage
     Dosage: SILICONE OIL FILL IN THE LEFT EYE

REACTIONS (1)
  - Maculopathy [Recovered/Resolved]
